FAERS Safety Report 4951611-6 (Version None)
Quarter: 2006Q1

REPORT INFORMATION
  Report Type: 
  Country: None (occurrence: None)
  Receive Date: 20060317
  Receipt Date: 20060302
  Transmission Date: 20060701
  Serious: Yes (Hospitalization)
  Sender: FDA-Public Use
  Company Number: 2005US001440

PATIENT
  Age: 59 Year
  Sex: Male

DRUGS (7)
  1. PROGRAF [Suspect]
     Indication: PROPHYLAXIS AGAINST TRANSPLANT REJECTION
     Dosage: 0.5 MG BID ORAL
     Route: 048
     Dates: start: 20050316, end: 20050829
  2. MYCOPHENOLATE MOFETIL [Suspect]
     Indication: PROPHYLAXIS AGAINST TRANSPLANT REJECTION
     Dosage: 500.00 MG BID ORAL
     Route: 048
     Dates: start: 20050315
  3. SEPTRA [Concomitant]
  4. VALCYTE [Concomitant]
  5. PRILOSEC [Concomitant]
  6. COUMADIN [Concomitant]
  7. TOPROL-XL [Concomitant]

REACTIONS (2)
  - NEPHRITIS INTERSTITIAL [None]
  - URINARY RETENTION [None]
